FAERS Safety Report 6260150-4 (Version None)
Quarter: 2009Q3

REPORT INFORMATION
  Report Type: 
  Country: None (occurrence: None)
  Receive Date: 20090708
  Receipt Date: 20090630
  Transmission Date: 20100115
  Serious: Yes (Hospitalization)
  Sender: FDA-Public Use
  Company Number: A0790460A

PATIENT
  Age: 64 Year
  Sex: Female

DRUGS (2)
  1. AVANDAMET [Suspect]
     Route: 048
     Dates: start: 20000101, end: 20070501
  2. AVANDIA [Suspect]
     Route: 048
     Dates: start: 20000101, end: 20070501

REACTIONS (1)
  - MYOCARDIAL INFARCTION [None]
